FAERS Safety Report 9251571 (Version 1)
Quarter: 2013Q1

REPORT INFORMATION
  Report Type: Spontaneous
  Country: US (occurrence: None)
  Receive Date: 20130305
  Receipt Date: 20130305
  Transmission Date: 20140127
  Serious: Yes (Other)
  Sender: FDA-Public Use
  Company Number: 163-21880-12082210

PATIENT
  Age: 71 Year
  Sex: Male
  Weight: 88 kg

DRUGS (11)
  1. REVLIMID (LENALIDOMIDE) (25 MILLIGRAM, CAPSULES) [Suspect]
     Indication: PLASMA CELL MYELOMA
     Dosage: 25 MG, 1 IN 1 D, PO
     Route: 048
     Dates: start: 200904
  2. ACYCLOVIR (ACICLOVIR) (UNKNOWN) [Concomitant]
  3. ALBUTEROL (SALBUTAMOL) (UNKNOWN) [Concomitant]
  4. AMIODARONE (AMIODARONE) (UNKNOWN) [Concomitant]
  5. CALCIUM (CALCIUM) (UNKNOWN) [Concomitant]
  6. FLOMAX (TAMSULOSIN HYDROCHLORIDE) (UNKNOWN) [Concomitant]
  7. LISINOPRIL (LISINOPRIL) (UNKNOWN) [Concomitant]
  8. METOPROLOL (METOPROLOL) (UNKNOWN) [Concomitant]
  9. PREDNISONE (PREDNISONE) (UNKNOWN) [Concomitant]
  10. VITAMIN D3 (COLECALCIFEROL) (UNKNOWN) [Concomitant]
  11. ZYTIGA (ABIRATERONE ACETATE) (UNKNOWN) [Concomitant]

REACTIONS (1)
  - Platelet count decreased [None]
